FAERS Safety Report 20396801 (Version 2)
Quarter: 2022Q1

REPORT INFORMATION
  Report Type: Spontaneous
  Country: US (occurrence: US)
  Receive Date: 20220131
  Receipt Date: 20220201
  Transmission Date: 20220423
  Serious: No
  Sender: FDA-Public Use
  Company Number: US-ABBVIE-21K-163-3755049-00

PATIENT
  Age: 59 Year
  Sex: Female

DRUGS (5)
  1. HUMIRA [Suspect]
     Active Substance: ADALIMUMAB
     Indication: Psoriatic arthropathy
     Dosage: INITIAL DOSE
     Route: 058
     Dates: start: 20210113, end: 20210113
  2. METOPROLOL [Concomitant]
     Active Substance: METOPROLOL
     Indication: Aortic aneurysm
  3. AMLODIPINE [Concomitant]
     Active Substance: AMLODIPINE BESYLATE
     Indication: Hypertension
  4. SIMVASTATIN [Concomitant]
     Active Substance: SIMVASTATIN
     Indication: Cholesterosis
  5. ASPIRIN [Concomitant]
     Active Substance: ASPIRIN
     Indication: Aneurysm

REACTIONS (2)
  - Device issue [Recovered/Resolved]
  - Injection site reaction [Recovered/Resolved]

NARRATIVE: CASE EVENT DATE: 20210127
